FAERS Safety Report 6422846-0 (Version None)
Quarter: 2009Q4

REPORT INFORMATION
  Report Type: 
  Country: None (occurrence: None)
  Receive Date: 20091102
  Receipt Date: 20091022
  Transmission Date: 20100525
  Serious: Yes (Hospitalization)
  Sender: FDA-Public Use
  Company Number: PL-JNJFOC-20081204986

PATIENT
  Sex: Female
  Weight: 57 kg

DRUGS (37)
  1. GOLIMUMAB [Suspect]
     Route: 058
  2. GOLIMUMAB [Suspect]
     Route: 058
  3. GOLIMUMAB [Suspect]
     Route: 058
  4. GOLIMUMAB [Suspect]
     Route: 058
  5. GOLIMUMAB [Suspect]
     Route: 058
  6. GOLIMUMAB [Suspect]
     Route: 058
  7. GOLIMUMAB [Suspect]
     Route: 058
  8. GOLIMUMAB [Suspect]
     Route: 058
  9. GOLIMUMAB [Suspect]
     Route: 058
  10. GOLIMUMAB [Suspect]
     Route: 058
  11. GOLIMUMAB [Suspect]
     Route: 058
  12. GOLIMUMAB [Suspect]
     Route: 058
  13. GOLIMUMAB [Suspect]
     Route: 058
  14. GOLIMUMAB [Suspect]
     Route: 058
  15. GOLIMUMAB [Suspect]
     Route: 058
  16. GOLIMUMAB [Suspect]
     Route: 058
  17. GOLIMUMAB [Suspect]
     Route: 058
  18. GOLIMUMAB [Suspect]
     Route: 058
  19. GOLIMUMAB [Suspect]
     Route: 058
  20. GOLIMUMAB [Suspect]
     Route: 058
  21. GOLIMUMAB [Suspect]
     Route: 058
  22. GOLIMUMAB [Suspect]
     Route: 058
  23. GOLIMUMAB [Suspect]
     Route: 058
  24. GOLIMUMAB [Suspect]
     Route: 058
  25. GOLIMUMAB [Suspect]
     Indication: RHEUMATOID ARTHRITIS
     Route: 058
  26. METHOTREXATE [Suspect]
     Route: 048
  27. METHOTREXATE [Suspect]
     Route: 048
  28. METHOTREXATE [Suspect]
     Route: 048
  29. METHOTREXATE [Suspect]
     Route: 048
  30. METHOTREXATE [Suspect]
     Route: 048
  31. METHOTREXATE [Suspect]
     Route: 048
  32. METHOTREXATE [Suspect]
     Indication: RHEUMATOID ARTHRITIS
     Route: 048
  33. ENARENAL [Concomitant]
     Route: 048
  34. DICLAC [Concomitant]
     Route: 048
  35. METYPRED [Concomitant]
     Route: 048
  36. ACIDUM FOLICUM [Concomitant]
     Route: 048
  37. INDAPAMIDE [Concomitant]

REACTIONS (7)
  - ANAEMIA [None]
  - BREAST ABSCESS [None]
  - BREAST DISCHARGE [None]
  - HYPOTHYROIDISM [None]
  - MASTITIS [None]
  - PROTEIN TOTAL ABNORMAL [None]
  - RENAL FAILURE [None]
